FAERS Safety Report 8203430-5 (Version None)
Quarter: 2012Q1

REPORT INFORMATION
  Report Type: 
  Country: None (occurrence: None)
  Receive Date: 20120313
  Receipt Date: 20120306
  Transmission Date: 20120608
  Serious: Yes (Death, Hospitalization)
  Sender: FDA-Public Use
  Company Number: DE-BRISTOL-MYERS SQUIBB COMPANY-13319934

PATIENT
  Age: 40 Year
  Sex: Male

DRUGS (1)
  1. DASATINIB [Suspect]
     Indication: LEUKAEMIA
     Dosage: INTERRUPTED 09-MAR-2006,FOR APPROX 1 YEAR
     Route: 048
     Dates: start: 20050408

REACTIONS (3)
  - PLEURAL EFFUSION [None]
  - DEATH [None]
  - PULMONARY HYPERTENSION [None]
